FAERS Safety Report 23188181 (Version 1)
Quarter: 2023Q4

REPORT INFORMATION
  Report Type: Spontaneous
  Country: JP (occurrence: JP)
  Receive Date: 20231115
  Receipt Date: 20231115
  Transmission Date: 20240110
  Serious: Yes (Death, Other)
  Sender: FDA-Public Use
  Company Number: JP-PFIZER INC-PV202300182976

PATIENT
  Age: 53 Year
  Sex: Female

DRUGS (6)
  1. METHOTREXATE SODIUM [Suspect]
     Active Substance: METHOTREXATE SODIUM
     Indication: Metastases to meninges
     Dosage: 15 MG, EVERY 4 DAYS
     Route: 037
  2. METHOTREXATE SODIUM [Suspect]
     Active Substance: METHOTREXATE SODIUM
     Dosage: 15 MG, EVERY WEEK
     Route: 037
  3. CYTARABINE [Suspect]
     Active Substance: CYTARABINE
     Indication: Metastases to meninges
     Dosage: 20 MG, EVERY 4 DAYS
     Route: 037
  4. CYTARABINE [Suspect]
     Active Substance: CYTARABINE
     Dosage: 20 MG, EVERY WEEK
     Route: 037
  5. DEXAMETHASONE [Suspect]
     Active Substance: DEXAMETHASONE
     Indication: Metastases to meninges
     Dosage: 3.3 MG, EVERY 4 DAYS
     Route: 037
  6. DEXAMETHASONE [Suspect]
     Active Substance: DEXAMETHASONE
     Dosage: 3.3 MG, EVERY WEEK
     Route: 037

REACTIONS (1)
  - Leukoencephalopathy [Fatal]
